FAERS Safety Report 5564533-7 (Version None)
Quarter: 2007Q4

REPORT INFORMATION
  Report Type: 
  Country: None (occurrence: None)
  Receive Date: 20071212
  Receipt Date: 20071126
  Transmission Date: 20080405
  Serious: Yes (Other)
  Sender: FDA-Public Use
  Company Number: 8028290

PATIENT
  Age: 35 Year
  Sex: Female

DRUGS (5)
  1. KEPPRA [Suspect]
     Indication: EPILEPSY
     Dosage: 3000 MG 1/D PO
     Route: 048
  2. TOPAMAX [Concomitant]
  3. PRENATAL VITAMINS [Concomitant]
  4. FOLIC ACID [Concomitant]
  5. CARTINE [Concomitant]

REACTIONS (2)
  - ABORTION SPONTANEOUS [None]
  - DRUG EXPOSURE DURING PREGNANCY [None]
